FAERS Safety Report 16069903 (Version 1)
Quarter: 2019Q1

REPORT INFORMATION
  Report Type: Spontaneous
  Country: US (occurrence: US)
  Receive Date: 20190314
  Receipt Date: 20190314
  Transmission Date: 20190418
  Serious: Yes (Other)
  Sender: FDA-Public Use
  Company Number: US-CIPLA LTD.-2019US01362

PATIENT

DRUGS (6)
  1. FLUOROURACIL. [Suspect]
     Active Substance: FLUOROURACIL
     Dosage: 500 MILLIGRAM/SQ. METER WEEKLY FOR 6 WEEKS
     Route: 040
  2. LEUCOVORIN                         /00566701/ [Suspect]
     Active Substance: LEUCOVORIN
     Indication: ADENOCARCINOMA
     Dosage: UNK (FOLFOX REGIMEN)
     Route: 065
  3. FLUOROURACIL. [Suspect]
     Active Substance: FLUOROURACIL
     Indication: ADENOCARCINOMA
     Dosage: UNK (FOLFOX REGIMEN)
  4. LEUCOVORIN                         /00566701/ [Suspect]
     Active Substance: LEUCOVORIN
     Dosage: 500 MILLIGRAM/SQ. METER WEEKLY FOR 6 WEEKS
     Route: 042
  5. OXALIPLATIN. [Suspect]
     Active Substance: OXALIPLATIN
     Indication: ADENOCARCINOMA
     Dosage: UNK (FOLFOX REGIMEN)
     Route: 065
  6. OXALIPLATIN. [Suspect]
     Active Substance: OXALIPLATIN
     Dosage: 85 MILLIGRAM/SQ. METER ON WEEKS 1, 3, AND 5 OF EACH 8-WEEK CYCLE.
     Route: 042

REACTIONS (1)
  - Malignant neoplasm progression [Unknown]
